FAERS Safety Report 6685195-1 (Version None)
Quarter: 2010Q2

REPORT INFORMATION
  Report Type: 
  Country: None (occurrence: None)
  Receive Date: 20100416
  Receipt Date: 20100408
  Transmission Date: 20101027
  Serious: Yes (Other)
  Sender: FDA-Public Use
  Company Number: GB-ABBOTT-10P-167-0637938-00

PATIENT
  Age: 65 Year
  Sex: Male

DRUGS (1)
  1. LUPRON DEPOT [Suspect]
     Indication: PROSTATE CANCER
     Route: 065

REACTIONS (3)
  - DISEASE PROGRESSION [None]
  - DRUG EFFECT DECREASED [None]
  - PROSTATIC SPECIFIC ANTIGEN INCREASED [None]
